FAERS Safety Report 24467361 (Version 1)
Quarter: 2024Q4

REPORT INFORMATION
  Report Type: Report from Study
  Country: US (occurrence: US)
  Receive Date: 20241018
  Receipt Date: 20241018
  Transmission Date: 20250115
  Serious: No
  Sender: ROCHE
  Company Number: US-ROCHE-3559290

PATIENT
  Sex: Female
  Weight: 58.97 kg

DRUGS (1)
  1. XOLAIR [Suspect]
     Active Substance: OMALIZUMAB
     Indication: Idiopathic urticaria
     Dosage: RECEIVES 2 INJECTIONS 150MG EACH IN THE BACK OF UPPER ARM ;ONGOING: YES?LAST INJECTION RECEIVED ON 0
     Route: 065

REACTIONS (3)
  - Urticaria [Not Recovered/Not Resolved]
  - Skin burning sensation [Not Recovered/Not Resolved]
  - Erythema [Not Recovered/Not Resolved]

NARRATIVE: CASE EVENT DATE: 20240401
